FAERS Safety Report 14925821 (Version 1)
Quarter: 2018Q2

REPORT INFORMATION
  Report Type: Report from Study
  Country: US (occurrence: US)
  Receive Date: 20180522
  Receipt Date: 20180522
  Transmission Date: 20180711
  Serious: Yes (Hospitalization)
  Sender: FDA-Public Use
  Company Number: US-ACTELION-A-NJ2018-172272

PATIENT
  Age: 88 Year
  Sex: Female

DRUGS (18)
  1. ALBUTEROL. [Concomitant]
     Active Substance: ALBUTEROL
  2. TEMAZEPAM. [Concomitant]
     Active Substance: TEMAZEPAM
  3. COUMADIN [Concomitant]
     Active Substance: WARFARIN SODIUM
  4. FUROSEMIDE. [Concomitant]
     Active Substance: FUROSEMIDE
  5. PROTONIX [Concomitant]
     Active Substance: PANTOPRAZOLE SODIUM
  6. CITALOPRAM [Concomitant]
     Active Substance: CITALOPRAM HYDROBROMIDE
  7. SILDENAFIL. [Concomitant]
     Active Substance: SILDENAFIL
  8. LOSARTAN. [Concomitant]
     Active Substance: LOSARTAN
  9. RANEXA [Concomitant]
     Active Substance: RANOLAZINE
  10. SOTALOL. [Concomitant]
     Active Substance: SOTALOL
  11. MAG OXIDE [Concomitant]
     Active Substance: MAGNESIUM OXIDE
  12. IPRATROPIUM [Concomitant]
     Active Substance: IPRATROPIUM
  13. SPIRIVA [Concomitant]
     Active Substance: TIOTROPIUM BROMIDE MONOHYDRATE
  14. CARVEDILOL. [Concomitant]
     Active Substance: CARVEDILOL
  15. ALPRAZOLAM. [Concomitant]
     Active Substance: ALPRAZOLAM
  16. OPSUMIT [Suspect]
     Active Substance: MACITENTAN
     Indication: PULMONARY ARTERIAL HYPERTENSION
     Dosage: 10 MG, QD
     Route: 048
     Dates: start: 20170209
  17. POTASSIUM [Concomitant]
     Active Substance: POTASSIUM
  18. ASA [Concomitant]
     Active Substance: ASPIRIN

REACTIONS (1)
  - Pulmonary oedema [Recovered/Resolved]

NARRATIVE: CASE EVENT DATE: 20180506
